FAERS Safety Report 25102577 (Version 1)
Quarter: 2025Q1

REPORT INFORMATION
  Report Type: Spontaneous
  Country: PL (occurrence: PL)
  Receive Date: 20250321
  Receipt Date: 20250321
  Transmission Date: 20250408
  Serious: Yes (Other)
  Sender: ABBVIE
  Company Number: PL-JNJFOC-20250336312

PATIENT
  Age: 56 Year

DRUGS (2)
  1. IMBRUVICA [Suspect]
     Active Substance: IBRUTINIB
     Indication: Chronic lymphocytic leukaemia
     Route: 048
  2. VENETOCLAX [Suspect]
     Active Substance: VENETOCLAX
     Indication: Chronic lymphocytic leukaemia
     Route: 048

REACTIONS (5)
  - Renal impairment [Unknown]
  - Tumour lysis syndrome [Unknown]
  - Hepatomegaly [Unknown]
  - Therapeutic product effect incomplete [Unknown]
  - Gallbladder disorder [Unknown]
